FAERS Safety Report 25017829 (Version 1)
Quarter: 2025Q1

REPORT INFORMATION
  Report Type: Report from Study
  Country: FI (occurrence: FI)
  Receive Date: 20250227
  Receipt Date: 20250227
  Transmission Date: 20250408
  Serious: Yes (Other)
  Sender: ABBVIE
  Company Number: FI-ABBVIE-5954848

PATIENT
  Age: 78 Year
  Sex: Female

DRUGS (1)
  1. FOSCARBIDOPA\FOSLEVODOPA [Suspect]
     Active Substance: FOSCARBIDOPA\FOSLEVODOPA
     Indication: Parkinson^s disease
     Route: 058
     Dates: start: 20240925

REACTIONS (9)
  - Blindness [Unknown]
  - Asthenia [Unknown]
  - Device use issue [Recovered/Resolved]
  - Fear of death [Unknown]
  - Musculoskeletal stiffness [Not Recovered/Not Resolved]
  - Feeling abnormal [Unknown]
  - Mobility decreased [Unknown]
  - Speech disorder [Unknown]
  - Cardiac disorder [Unknown]

NARRATIVE: CASE EVENT DATE: 20240101
